FAERS Safety Report 6615699-9 (Version None)
Quarter: 2010Q1

REPORT INFORMATION
  Report Type: 
  Country: None (occurrence: None)
  Receive Date: 20100226
  Receipt Date: 20100222
  Transmission Date: 20100710
  Serious: Yes (Other)
  Sender: FDA-Public Use
  Company Number: DE-GDP-10407542

PATIENT
  Sex: Female

DRUGS (1)
  1. METROLOTION (METRONIDAZOLE) 0.75 % [Suspect]
     Indication: ROSACEA
     Dosage: TOPICAL
     Route: 061
     Dates: start: 20091001, end: 20100115

REACTIONS (8)
  - ALCOHOL USE [None]
  - ANXIETY [None]
  - DRUG INTERACTION [None]
  - FALL [None]
  - FEAR [None]
  - MUSCLE SPASMS [None]
  - MUSCLE TWITCHING [None]
  - PANIC ATTACK [None]
